FAERS Safety Report 14301163 (Version 1)
Quarter: 2017Q4

REPORT INFORMATION
  Report Type: Report from Study
  Country: GB (occurrence: GB)
  Receive Date: 20171219
  Receipt Date: 20171219
  Transmission Date: 20180321
  Serious: Yes (Other)
  Sender: FDA-Public Use
  Company Number: GB-TEVA-2017-GB-831879

PATIENT
  Sex: Female

DRUGS (1)
  1. COPAXONE [Suspect]
     Active Substance: GLATIRAMER ACETATE
     Route: 058
     Dates: start: 20170802, end: 201709

REACTIONS (4)
  - Injection site erythema [Recovering/Resolving]
  - Chest discomfort [Recovering/Resolving]
  - Respiratory distress [Recovering/Resolving]
  - Injection site swelling [Recovering/Resolving]
